FAERS Safety Report 15813692 (Version 1)
Quarter: 2019Q1

REPORT INFORMATION
  Report Type: Spontaneous
  Country: US (occurrence: US)
  Receive Date: 20190111
  Receipt Date: 20190111
  Transmission Date: 20190417
  Serious: Yes (Hospitalization, Other)
  Sender: FDA-Public Use
  Company Number: US-BAYER-2019-003962

PATIENT
  Age: 22 Year
  Sex: Female

DRUGS (1)
  1. ACETYLSALICYLIC ACID (} 100 MG) [Suspect]
     Active Substance: ASPIRIN
     Dosage: 500 DF, UNK
     Route: 048

REACTIONS (9)
  - Bezoar [Recovering/Resolving]
  - Intentional overdose [Recovering/Resolving]
  - Sinus tachycardia [Recovering/Resolving]
  - Nausea [Recovering/Resolving]
  - Gastritis [Recovering/Resolving]
  - Metabolic acidosis [Recovering/Resolving]
  - Analgesic drug level increased [Recovering/Resolving]
  - Epigastric discomfort [Recovering/Resolving]
  - Toxicity to various agents [Recovering/Resolving]
